FAERS Safety Report 21129862 (Version 1)
Quarter: 2022Q3

REPORT INFORMATION
  Report Type: Report from Study
  Country: FR (occurrence: FR)
  Receive Date: 20220726
  Receipt Date: 20220726
  Transmission Date: 20221026
  Serious: Yes (Hospitalization)
  Sender: FDA-Public Use
  Company Number: FR-SERVIER-S22007448

PATIENT

DRUGS (8)
  1. PEGASPARGASE [Suspect]
     Active Substance: PEGASPARGASE
     Indication: Acute lymphocytic leukaemia
     Dosage: 1775 IU, QD, ON D4
     Route: 042
     Dates: start: 20220509, end: 20220509
  2. THIOGUANINE ANHYDROUS [Suspect]
     Active Substance: THIOGUANINE ANHYDROUS
     Indication: Acute lymphocytic leukaemia
     Dosage: 40 MG, QD, D29 TO D42
     Route: 048
     Dates: start: 20220608, end: 20220621
  3. VINCRISTINE [Suspect]
     Active Substance: VINCRISTINE
     Indication: Acute lymphocytic leukaemia
     Dosage: 1 MG, QD, ON D1, D8, D15
     Route: 042
     Dates: start: 20220506, end: 20220520
  4. DAUNORUBICIN [Suspect]
     Active Substance: DAUNORUBICIN
     Indication: Acute lymphocytic leukaemia
     Dosage: 19 MG, QD, ON D1, D8, D15
     Route: 042
     Dates: start: 20220506, end: 20220520
  5. METHOTREXATE [Suspect]
     Active Substance: METHOTREXATE
     Indication: Acute lymphocytic leukaemia
     Dosage: 12 MG, QD, ON D1, D8, D15
     Route: 037
     Dates: start: 20220506, end: 20220520
  6. METHOTREXATE [Suspect]
     Active Substance: METHOTREXATE
     Dosage: 12 MG, ON D31
     Route: 037
     Dates: start: 20220610, end: 20220610
  7. CYCLOPHOSPHAMIDE [Suspect]
     Active Substance: CYCLOPHOSPHAMIDE
     Indication: Acute lymphocytic leukaemia
     Dosage: 760 MG, QD, ON D29
     Route: 042
     Dates: start: 20220608, end: 20220608
  8. CYTARABINE [Suspect]
     Active Substance: CYTARABINE
     Indication: Acute lymphocytic leukaemia
     Dosage: 228 MG, ON D31-D34, D38-D41
     Route: 042
     Dates: start: 20220610, end: 20220620

REACTIONS (1)
  - Venoocclusive liver disease [Recovered/Resolved]

NARRATIVE: CASE EVENT DATE: 20220627
